FAERS Safety Report 10412470 (Version 1)
Quarter: 2014Q3

REPORT INFORMATION
  Report Type: Spontaneous
  Country: DK (occurrence: AU)
  Receive Date: 20140827
  Receipt Date: 20140827
  Transmission Date: 20150326
  Serious: Yes (Congenital Anomaly)
  Sender: FDA-Public Use
  Company Number: AU-FRI-1000070188

PATIENT

DRUGS (2)
  1. CITALOPRAM [Suspect]
     Active Substance: CITALOPRAM HYDROBROMIDE
     Route: 064
  2. LETROZOLE. [Suspect]
     Active Substance: LETROZOLE
     Route: 064
     Dates: start: 20140401, end: 20140406

REACTIONS (2)
  - Foetal exposure during pregnancy [Recovered/Resolved]
  - Encephalocele [Unknown]
